FAERS Safety Report 25214231 (Version 1)
Quarter: 2025Q2

REPORT INFORMATION
  Report Type: Spontaneous
  Country: SE (occurrence: SE)
  Receive Date: 20250418
  Receipt Date: 20250418
  Transmission Date: 20250716
  Serious: Yes (Death)
  Sender: PFIZER
  Company Number: None

PATIENT
  Age: 86 Year
  Sex: Male
  Weight: 66.3 kg

DRUGS (10)
  1. SOLU-MEDROL [Suspect]
     Active Substance: METHYLPREDNISOLONE SODIUM SUCCINATE
     Indication: Hepatitis
     Route: 042
     Dates: start: 20250311
  2. SOLU-MEDROL [Suspect]
     Active Substance: METHYLPREDNISOLONE SODIUM SUCCINATE
     Route: 042
     Dates: end: 20250318
  3. OPDIVO [Suspect]
     Active Substance: NIVOLUMAB
     Indication: Palliative care
     Route: 042
     Dates: start: 20250213, end: 20250213
  4. ZOPICLONE [Concomitant]
     Active Substance: ZOPICLONE
     Route: 048
     Dates: start: 20250214
  5. CETRAXAL COMP [Concomitant]
     Dates: start: 20240605
  6. CARBOMER [Concomitant]
     Active Substance: CARBOMER
     Dates: start: 20180216
  7. SODIUM PICOSULFATE [Concomitant]
     Active Substance: SODIUM PICOSULFATE
     Dates: start: 20250206
  8. OCULENTUM SIMPLEX APL [Concomitant]
     Dates: start: 20250224
  9. UREA [Concomitant]
     Active Substance: UREA
     Dates: start: 20250212
  10. FOTIL FORTE [Concomitant]
     Dosage: 1 DROP, IN RIGHT EYE
     Dates: start: 20190927

REACTIONS (4)
  - Immune-mediated hepatitis [Fatal]
  - Enteritis [Fatal]
  - Small intestinal perforation [Fatal]
  - Off label use [Unknown]

NARRATIVE: CASE EVENT DATE: 20230318
